FAERS Safety Report 22741818 (Version 5)
Quarter: 2024Q1

REPORT INFORMATION
  Report Type: Spontaneous
  Country: US (occurrence: US)
  Receive Date: 20230724
  Receipt Date: 20240307
  Transmission Date: 20240410
  Serious: No
  Sender: FDA-Public Use
  Company Number: US-PHARMAESSENTIA CORPORATION-US-2023-PEC-001726

PATIENT
  Sex: Male

DRUGS (3)
  1. BESREMI [Suspect]
     Active Substance: ROPEGINTERFERON ALFA-2B-NJFT
     Indication: Polycythaemia vera
     Dosage: 100 MICROGRAM, Q2W
     Route: 058
     Dates: start: 20230408
  2. BESREMI [Suspect]
     Active Substance: ROPEGINTERFERON ALFA-2B-NJFT
     Dosage: 150 MCG, Q2W
     Route: 058
  3. BESREMI [Suspect]
     Active Substance: ROPEGINTERFERON ALFA-2B-NJFT
     Dosage: 150 MCG, Q2W
     Route: 058
     Dates: start: 20231104

REACTIONS (7)
  - Nephrolithiasis [Recovered/Resolved]
  - Urethral pain [Unknown]
  - Peripheral swelling [Unknown]
  - Back pain [Not Recovered/Not Resolved]
  - Confusional state [Unknown]
  - Abdominal pain lower [Unknown]
  - Pain in extremity [Unknown]

NARRATIVE: CASE EVENT DATE: 20231101
